FAERS Safety Report 23498516 (Version 1)
Quarter: 2024Q1

REPORT INFORMATION
  Report Type: Spontaneous
  Country: US (occurrence: None)
  Receive Date: 20240207
  Receipt Date: 20240207
  Transmission Date: 20240410
  Serious: Yes (unspecified)
  Sender: FDA-Public Use
  Company Number: None

PATIENT
  Age: 36 Year
  Sex: Female

DRUGS (1)
  1. XDEMVY [Suspect]
     Active Substance: LOTILANER
     Indication: Dry eye
     Dates: start: 20240203

REACTIONS (4)
  - Eye swelling [None]
  - Eye pain [None]
  - Eyelid margin crusting [None]
  - Ocular hyperaemia [None]

NARRATIVE: CASE EVENT DATE: 20240206
